FAERS Safety Report 7852103-7 (Version None)
Quarter: 2011Q4

REPORT INFORMATION
  Report Type: 
  Country: None (occurrence: None)
  Receive Date: 20111026
  Receipt Date: 20111020
  Transmission Date: 20120403
  Serious: Yes (Hospitalization)
  Sender: FDA-Public Use
  Company Number: JP-PFIZER INC-2011255934

PATIENT
  Age: 69 Year
  Sex: Female

DRUGS (2)
  1. LYRICA [Suspect]
     Dosage: 25 MG X 4 CAPSULES PER DAY
     Route: 048
     Dates: start: 20110701
  2. LYRICA [Suspect]
     Dosage: 100 MG/DAY
     Route: 048

REACTIONS (2)
  - ORTHOPEDIC PROCEDURE [None]
  - WEIGHT INCREASED [None]
